FAERS Safety Report 24264942 (Version 2)
Quarter: 2024Q3

REPORT INFORMATION
  Report Type: Spontaneous
  Country: GB (occurrence: None)
  Receive Date: 20240829
  Receipt Date: 20240830
  Transmission Date: 20241016
  Serious: Yes (Life-Threatening, Hospitalization)
  Sender: ASTRAZENECA
  Company Number: 2024A196774

PATIENT
  Age: 69 Year
  Sex: Female

DRUGS (1)
  1. DURVALUMAB [Suspect]
     Active Substance: DURVALUMAB
     Indication: Lung adenocarcinoma stage III
     Dosage: 10 MG/KG GIVEN IN 2 WEEKLY CYCLES
     Route: 042

REACTIONS (3)
  - Muscular weakness [Recovering/Resolving]
  - Myocarditis [Recovering/Resolving]
  - Myositis [Recovering/Resolving]
